FAERS Safety Report 6297139-5 (Version None)
Quarter: 2009Q3

REPORT INFORMATION
  Report Type: 
  Country: None (occurrence: None)
  Receive Date: 20090724
  Receipt Date: 20090501
  Transmission Date: 20100115
  Serious: Yes (Hospitalization)
  Sender: FDA-Public Use
  Company Number: 2008BI030948

PATIENT
  Age: 48 Year
  Sex: Female

DRUGS (3)
  1. TYSABRI [Suspect]
     Indication: MULTIPLE SCLEROSIS
     Dates: start: 20070326
  2. AVONEX [Concomitant]
  3. REBIF [Concomitant]

REACTIONS (6)
  - FATIGUE [None]
  - HYPOTHYROIDISM [None]
  - MENOPAUSE [None]
  - PNEUMONIA ASPIRATION [None]
  - VULVOVAGINAL PRURITUS [None]
  - WHITE BLOOD CELL COUNT INCREASED [None]
